FAERS Safety Report 20231740 (Version 2)
Quarter: 2022Q1

REPORT INFORMATION
  Report Type: Report from Study
  Country: FR (occurrence: None)
  Receive Date: 20211227
  Receipt Date: 20220105
  Transmission Date: 20220423
  Serious: Yes (Death)
  Sender: FDA-Public Use
  Company Number: FR-ROCHE-2986871

PATIENT
  Age: 71 Year
  Sex: Male
  Weight: 60.55 kg

DRUGS (2)
  1. ATEZOLIZUMAB [Suspect]
     Active Substance: ATEZOLIZUMAB
     Indication: Squamous cell carcinoma of head and neck
     Dosage: LAST ADMINISTRATION BEFORE SAE ON 14/DEC/2021
     Route: 042
     Dates: start: 20210920
  2. BEVACIZUMAB [Suspect]
     Active Substance: BEVACIZUMAB
     Indication: Squamous cell carcinoma of head and neck
     Dosage: LAST ADMINISTRATION BEFORE SAE ON 14/DEC/2021
     Route: 042
     Dates: start: 20210920

REACTIONS (1)
  - Death [Fatal]

NARRATIVE: CASE EVENT DATE: 20211220
